FAERS Safety Report 8550271-5 (Version None)
Quarter: 2012Q3

REPORT INFORMATION
  Report Type: 
  Country: None (occurrence: None)
  Receive Date: 20120718
  Receipt Date: 20120711
  Transmission Date: 20120928
  Serious: Yes (Hospitalization, Other)
  Sender: FDA-Public Use
  Company Number: ADR-2012-00727

PATIENT
  Sex: Female

DRUGS (2)
  1. LIORESAL [Suspect]
     Indication: MULTIPLE SCLEROSIS
     Dosage: 749.5 MCG/DAY
  2. LIORESAL [Suspect]
     Indication: MUSCLE SPASTICITY
     Dosage: 749.5 MCG/DAY

REACTIONS (5)
  - DEVICE LEAKAGE [None]
  - PNEUMONIA [None]
  - MUSCULOSKELETAL STIFFNESS [None]
  - IMPLANT SITE CALCIFICATION [None]
  - DEVICE OCCLUSION [None]
